FAERS Safety Report 13791328 (Version 2)
Quarter: 2017Q3

REPORT INFORMATION
  Report Type: Spontaneous
  Country: SE (occurrence: SE)
  Receive Date: 20170725
  Receipt Date: 20170907
  Transmission Date: 20171127
  Serious: Yes (Other)
  Sender: FDA-Public Use
  Company Number: SE-ABBVIE-17P-150-2047072-00

PATIENT
  Age: 67 Year
  Sex: Female

DRUGS (5)
  1. LOSARTAN POTASSIUM/HYDROCHLOROTHIAZIDE (MAROZID) [Concomitant]
     Indication: PRODUCT USED FOR UNKNOWN INDICATION
     Dosage: FORM STRENGTH 100MG /25MG
  2. ACETYLSALISYLIC ACID (TROMBYL) [Concomitant]
     Indication: PRODUCT USED FOR UNKNOWN INDICATION
  3. MODERIBA [Suspect]
     Active Substance: RIBAVIRIN
     Indication: PRODUCT USED FOR UNKNOWN INDICATION
     Route: 048
  4. EXVIERA [Suspect]
     Active Substance: DASABUVIR
     Indication: CHRONIC HEPATITIS C
     Route: 048
     Dates: start: 20170608, end: 20170711
  5. VIEKIRAX [Suspect]
     Active Substance: OMBITASVIR\PARITAPREVIR\RITONAVIR
     Indication: CHRONIC HEPATITIS C
     Dosage: FORM STRENGTH: 12.5MG /75MG /50MG
     Route: 048
     Dates: start: 20170608, end: 20170711

REACTIONS (5)
  - Aspartate aminotransferase increased [Recovered/Resolved]
  - Transaminases increased [Recovered/Resolved]
  - Blood bilirubin increased [Recovered/Resolved]
  - Alanine aminotransferase increased [Recovered/Resolved]
  - Anaemia [Recovered/Resolved]

NARRATIVE: CASE EVENT DATE: 20170621
